FAERS Safety Report 12720869 (Version 1)
Quarter: 2016Q3

REPORT INFORMATION
  Report Type: Spontaneous
  Country: DE (occurrence: DE)
  Receive Date: 20160907
  Receipt Date: 20160907
  Transmission Date: 20161109
  Serious: Yes (Other)
  Sender: FDA-Public Use
  Company Number: DE-AMGEN-DEUSP2016116505

PATIENT
  Sex: Female

DRUGS (1)
  1. PROLIA [Suspect]
     Active Substance: DENOSUMAB
     Indication: PRODUCT USED FOR UNKNOWN INDICATION
     Dosage: UNK
     Route: 065

REACTIONS (19)
  - Tremor [Unknown]
  - Diarrhoea [Unknown]
  - Extrasystoles [Unknown]
  - Haematuria [Unknown]
  - Colon cancer [Unknown]
  - Rheumatic disorder [Unknown]
  - Flatulence [Unknown]
  - Systemic lupus erythematosus [Unknown]
  - Nausea [Unknown]
  - Lipase increased [Unknown]
  - Hyperhidrosis [Unknown]
  - Abdominal pain [Unknown]
  - Arthropathy [Unknown]
  - Dizziness [Unknown]
  - Disturbance in attention [Unknown]
  - Visual impairment [Unknown]
  - Headache [Unknown]
  - Raynaud^s phenomenon [Unknown]
  - Hypocalcaemia [Unknown]

NARRATIVE: CASE EVENT DATE: 2010
